FAERS Safety Report 9913635 (Version 1)
Quarter: 2014Q1

REPORT INFORMATION
  Report Type: Spontaneous
  Country: US (occurrence: None)
  Receive Date: 20140218
  Receipt Date: 20140218
  Transmission Date: 20141002
  Serious: Yes (Hospitalization)
  Sender: FDA-Public Use
  Company Number: None

PATIENT
  Age: 64 Year
  Sex: Female
  Weight: 60.33 kg

DRUGS (4)
  1. DACOGEN [Suspect]
     Indication: ACUTE MYELOID LEUKAEMIA
     Dosage: QDX10; 28 DAY CYCLE
     Dates: start: 20131004
  2. ACYCLOVIR [Concomitant]
  3. FAMOTIDINE [Concomitant]
  4. FLUCONAZOLE [Concomitant]

REACTIONS (6)
  - Oropharyngeal pain [None]
  - Dysphagia [None]
  - Cough [None]
  - Dyspnoea [None]
  - Pain [None]
  - Neutrophil count decreased [None]
